FAERS Safety Report 8799349 (Version 1)
Quarter: 2012Q4

REPORT INFORMATION
  Report Type: 
  Country: GB (occurrence: GB)
  Receive Date: 20120920
  Receipt Date: 20120920
  Transmission Date: 20130627
  Serious: Yes (Other)
  Sender: FDA-Public Use
  Company Number: GB-BAXTER-2012BAX017333

PATIENT

DRUGS (3)
  1. BUPIVACAINE HYDROCHLORIDE\DEXTROSE [Suspect]
     Indication: DRUG EXPOSURE VIA MOTHER
     Route: 064
  2. 0.9% SODIUM CHLORIDE INJECTION [Suspect]
     Indication: DRUG EXPOSURE VIA MOTHER
     Route: 064
  3. FENTANYL [Suspect]
     Indication: DRUG EXPOSURE VIA MOTHER
     Route: 064

REACTIONS (2)
  - Apgar score low [Recovered/Resolved]
  - Foetal exposure during pregnancy [Recovered/Resolved]
